FAERS Safety Report 7629881-5 (Version None)
Quarter: 2011Q3

REPORT INFORMATION
  Report Type: 
  Country: None (occurrence: None)
  Receive Date: 20110722
  Receipt Date: 20110715
  Transmission Date: 20111222
  Serious: Yes (Other)
  Sender: FDA-Public Use
  Company Number: US-JNJFOC-20110707491

PATIENT
  Sex: Female
  Weight: 52.16 kg

DRUGS (12)
  1. ADDERALL 10 [Concomitant]
     Indication: FATIGUE
     Route: 048
  2. DURAGESIC-100 [Suspect]
     Indication: BACK PAIN
     Route: 062
     Dates: end: 20110201
  3. DURAGESIC-100 [Suspect]
     Route: 062
     Dates: end: 20110201
  4. DURAGESIC-100 [Suspect]
     Route: 062
     Dates: start: 20110201
  5. BACLOFEN [Concomitant]
     Indication: MUSCLE RELAXANT THERAPY
     Route: 048
  6. OXYCODONE HCL [Concomitant]
     Indication: PAIN
     Dosage: AS NEEDED
     Route: 048
  7. ZANAFLEX [Concomitant]
     Indication: MUSCLE RELAXANT THERAPY
     Route: 048
  8. XANAX [Concomitant]
     Indication: POST-TRAUMATIC STRESS DISORDER
     Route: 048
  9. DURAGESIC-100 [Suspect]
     Indication: PRODUCT USED FOR UNKNOWN INDICATION
     Route: 062
  10. OXYCODONE HCL [Concomitant]
     Route: 048
  11. XANAX [Concomitant]
     Indication: ANXIETY
     Route: 048
  12. DURAGESIC-100 [Suspect]
     Indication: RHEUMATOID ARTHRITIS
     Route: 062
     Dates: start: 20110201

REACTIONS (5)
  - HYPERAESTHESIA [None]
  - THERAPEUTIC RESPONSE INCREASED [None]
  - DRUG TOLERANCE [None]
  - INTERVERTEBRAL DISC DISORDER [None]
  - PRODUCT TAMPERING [None]
